FAERS Safety Report 7564920-1 (Version None)
Quarter: 2011Q2

REPORT INFORMATION
  Report Type: 
  Country: None (occurrence: None)
  Receive Date: 20110622
  Receipt Date: 20110321
  Transmission Date: 20111010
  Serious: Yes (Other)
  Sender: FDA-Public Use
  Company Number: US-MYLANLABS-2011S1003493

PATIENT
  Age: 20 Year
  Sex: Male

DRUGS (6)
  1. BENZTROPINE MESYLATE [Concomitant]
  2. DESMOPRESSIN [Concomitant]
     Dosage: 0.2MG TABLETS X 3
  3. CLOZAPINE [Suspect]
     Route: 048
     Dates: start: 20100817, end: 20110201
  4. OXYBUTYNIN [Concomitant]
  5. DEPAKOTE ER [Concomitant]
     Dosage: 500MG TABLETS
  6. CLOZAPINE [Suspect]
     Route: 048
     Dates: start: 20110225

REACTIONS (2)
  - GRANULOCYTOPENIA [None]
  - LEUKOPENIA [None]
